FAERS Safety Report 18952593 (Version 1)
Quarter: 2021Q1

REPORT INFORMATION
  Report Type: Spontaneous
  Country: US (occurrence: US)
  Receive Date: 20210226
  Receipt Date: 20210226
  Transmission Date: 20210420
  Serious: Yes (Death)
  Sender: FDA-Public Use
  Company Number: None

PATIENT
  Age: 11 Month
  Sex: Male

DRUGS (1)
  1. SILDENAFIL SUSPENSION 10MG/ML ACTAVIS PHARMA [Suspect]
     Active Substance: SILDENAFIL
     Indication: COARCTATION OF THE AORTA
     Dosage: OTHER DOSE:0.94ML; EVERY 8 HOURS G?TUBE?
     Dates: start: 20210204

REACTIONS (1)
  - Cardiac disorder [None]

NARRATIVE: CASE EVENT DATE: 20210223
